FAERS Safety Report 25539752 (Version 1)
Quarter: 2025Q3

REPORT INFORMATION
  Report Type: Spontaneous
  Country: EU (occurrence: EU)
  Receive Date: 20250710
  Receipt Date: 20250710
  Transmission Date: 20251020
  Serious: Yes (Hospitalization)
  Sender: ELI LILLY AND COMPANY
  Company Number: None

PATIENT
  Age: 79 Year
  Sex: Female
  Weight: 46.4 kg

DRUGS (8)
  1. GEMCITABINE HYDROCHLORIDE [Suspect]
     Active Substance: GEMCITABINE HYDROCHLORIDE
     Indication: Cholangiocarcinoma
     Route: 042
     Dates: start: 20240301, end: 20240301
  2. GEMCITABINE HYDROCHLORIDE [Suspect]
     Active Substance: GEMCITABINE HYDROCHLORIDE
     Route: 042
     Dates: start: 20240315, end: 20240315
  3. GEMCITABINE HYDROCHLORIDE [Suspect]
     Active Substance: GEMCITABINE HYDROCHLORIDE
     Route: 042
     Dates: start: 20240322, end: 20240322
  4. GEMCITABINE HYDROCHLORIDE [Suspect]
     Active Substance: GEMCITABINE HYDROCHLORIDE
     Route: 042
     Dates: start: 20240408, end: 20240408
  5. METFORMIN HYDROCHLORIDE [Concomitant]
     Active Substance: METFORMIN HYDROCHLORIDE
     Indication: Product used for unknown indication
  6. SPIRONOLACTONE [Concomitant]
     Active Substance: SPIRONOLACTONE
     Indication: Product used for unknown indication
  7. OZEMPIC [Concomitant]
     Active Substance: SEMAGLUTIDE
     Indication: Product used for unknown indication
  8. FUROSEMIDE [Concomitant]
     Active Substance: FUROSEMIDE
     Indication: Product used for unknown indication

REACTIONS (11)
  - Dehydration [Unknown]
  - Toxicity to various agents [Unknown]
  - Abdominal pain [Unknown]
  - Bicytopenia [Unknown]
  - Acute kidney injury [Recovered/Resolved]
  - Diarrhoea [Recovered/Resolved]
  - Hypotension [Unknown]
  - Anaemia [Recovering/Resolving]
  - Thrombocytopenia [Not Recovered/Not Resolved]
  - Decreased appetite [Unknown]
  - Pyrexia [Unknown]

NARRATIVE: CASE EVENT DATE: 20240411
